FAERS Safety Report 16961723 (Version 9)
Quarter: 2020Q1

REPORT INFORMATION
  Report Type: Report from Study
  Country: IL (occurrence: IL)
  Receive Date: 20191025
  Receipt Date: 20200106
  Transmission Date: 20200409
  Serious: Yes (Hospitalization)
  Sender: FDA-Public Use
  Company Number: IL-EISAI MEDICAL RESEARCH-EC-2019-064205

PATIENT
  Age: 87 Year
  Sex: Male
  Weight: 71.8 kg

DRUGS (23)
  1. PRADAXA [Concomitant]
     Active Substance: DABIGATRAN ETEXILATE MESYLATE
     Dates: start: 201905
  2. TARDYFERON [Concomitant]
     Active Substance: FERROUS SULFATE
     Dates: start: 201803
  3. ASENTA [Concomitant]
     Dates: start: 201603
  4. PREDNISONE. [Concomitant]
     Active Substance: PREDNISONE
     Dates: start: 20191007, end: 20191010
  5. PEMBROLIZUMAB. [Suspect]
     Active Substance: PEMBROLIZUMAB
     Indication: MALIGNANT MELANOMA STAGE IV
     Route: 041
     Dates: start: 20190924, end: 20190924
  6. PRELOX [Concomitant]
     Dates: start: 201901
  7. SERETIDE [Concomitant]
     Active Substance: FLUTICASONE PROPIONATE\SALMETEROL XINAFOATE
     Dates: start: 201101
  8. LENVATINIB [Suspect]
     Active Substance: LENVATINIB
     Indication: MALIGNANT MELANOMA STAGE IV
  9. CHROMIUM PICOLINATE [Concomitant]
     Active Substance: CHROMIUM PICOLINATE
     Dates: start: 201901
  10. DESLORATADINE. [Concomitant]
     Active Substance: DESLORATADINE
     Dates: start: 201807
  11. FERRIPEL [Concomitant]
     Dates: start: 201910
  12. LENVATINIB [Suspect]
     Active Substance: LENVATINIB
     Indication: MALIGNANT MELANOMA STAGE III
     Route: 048
     Dates: start: 20190904, end: 20191016
  13. LORASTINE [Concomitant]
     Active Substance: LORATADINE
     Dates: start: 20191010, end: 20191010
  14. NOVO-NORM [Concomitant]
     Active Substance: REPAGLINIDE
     Dates: start: 201803
  15. SIMVASTATIN. [Concomitant]
     Active Substance: SIMVASTATIN
     Dates: start: 200401
  16. SEROQUEL [Concomitant]
     Active Substance: QUETIAPINE FUMARATE
     Dates: start: 201910
  17. CEFAZOLIN [Concomitant]
     Active Substance: CEFAZOLIN
     Dates: start: 201910
  18. PEMBROLIZUMAB. [Suspect]
     Active Substance: PEMBROLIZUMAB
     Indication: MALIGNANT MELANOMA STAGE III
     Route: 041
     Dates: start: 20190904, end: 20190904
  19. CEPHALEXIN. [Concomitant]
     Active Substance: CEPHALEXIN
     Dates: start: 201910
  20. ORACORT [Concomitant]
     Dates: start: 20190929
  21. RAMIPRIL. [Concomitant]
     Active Substance: RAMIPRIL
     Dates: start: 201803
  22. EUCREAS [Concomitant]
     Active Substance: METFORMIN HYDROCHLORIDE\VILDAGLIPTIN
     Dates: start: 201501
  23. NEXIUM [Concomitant]
     Active Substance: ESOMEPRAZOLE MAGNESIUM
     Dates: start: 201902

REACTIONS (1)
  - Oropharyngeal candidiasis [Recovered/Resolved]

NARRATIVE: CASE EVENT DATE: 20191011
